FAERS Safety Report 9763232 (Version 1)
Quarter: 2013Q4

REPORT INFORMATION
  Report Type: Spontaneous
  Country: US (occurrence: US)
  Receive Date: 20131216
  Receipt Date: 20131216
  Transmission Date: 20140711
  Serious: No
  Sender: FDA-Public Use
  Company Number: US-BIOGENIDEC-2013BI103995

PATIENT
  Age: 49 Year
  Sex: Female

DRUGS (11)
  1. TECFIDERA [Suspect]
     Indication: MULTIPLE SCLEROSIS
     Route: 048
     Dates: start: 20131014
  2. ASPIRIN [Concomitant]
  3. UROXATRAL [Concomitant]
  4. CLONAZEPAM [Concomitant]
  5. CALCIUM [Concomitant]
  6. VITAMIN D [Concomitant]
  7. VITAMIN C [Concomitant]
  8. HIPREX [Concomitant]
  9. NAMENDA [Concomitant]
  10. CELEXA [Concomitant]
  11. PROVIGIL [Concomitant]

REACTIONS (1)
  - Fatigue [Unknown]
